FAERS Safety Report 19489703 (Version 2)
Quarter: 2021Q3

REPORT INFORMATION
  Report Type: Spontaneous
  Country: IN (occurrence: IN)
  Receive Date: 20210704
  Receipt Date: 20210719
  Transmission Date: 20211014
  Serious: No
  Sender: FDA-Public Use
  Company Number: IN-LUPIN LIMITED-2021-10603

PATIENT
  Age: 50 Year
  Sex: Male

DRUGS (5)
  1. LANTUS [Concomitant]
     Active Substance: INSULIN GLARGINE
     Indication: DIABETES MELLITUS
     Dosage: UNK UNK, QD (AT NIGHT)
     Route: 065
  2. TELISTA?H [Suspect]
     Active Substance: HYDROCHLOROTHIAZIDE\TELMISARTAN
     Indication: BLOOD PRESSURE DIASTOLIC INCREASED
     Dosage: UNK UNK, QD (TELISTA H FOR NEARLY A YEAR)
     Route: 065
  3. TELISTA?H [Suspect]
     Active Substance: HYDROCHLOROTHIAZIDE\TELMISARTAN
     Dosage: UNK (STOPPED TAKING MEDICINE EVERYDAY AND TAKES IT ONLY WHEN HE FEELS HIS BP IS NOT UNDER CONTROL)
     Route: 065
  4. EXERMET [Concomitant]
     Active Substance: METFORMIN HYDROCHLORIDE
     Indication: DIABETES MELLITUS
     Dosage: 500 MILLIGRAM, QD (BEFORE BREAKFAST)
     Route: 065
  5. AMLODIPINE [Concomitant]
     Active Substance: AMLODIPINE BESYLATE
     Indication: BLOOD PRESSURE ABNORMAL
     Dosage: UNK UNK, QD (AT NIGHT)
     Route: 065

REACTIONS (5)
  - Inappropriate schedule of product administration [Unknown]
  - Dizziness [Unknown]
  - Confusional state [Unknown]
  - Asthenia [Unknown]
  - Hypertension [Unknown]
